FAERS Safety Report 5266405-4 (Version None)
Quarter: 2007Q1

REPORT INFORMATION
  Report Type: 
  Country: None (occurrence: None)
  Receive Date: 20070315
  Receipt Date: 20070117
  Transmission Date: 20070707
  Serious: No
  Sender: FDA-Public Use
  Company Number: US-GLAXOSMITHKLINE-A0635999A

PATIENT
  Sex: Female

DRUGS (7)
  1. FLOVENT [Suspect]
     Dosage: 2PUFF TWICE PER DAY
     Route: 055
     Dates: start: 20060701
  2. DIGOXIN [Concomitant]
  3. HYDROCHLOROTHIAZIDE [Concomitant]
  4. SULFA TRIMETHOPRIM [Concomitant]
  5. VITAMIN K [Concomitant]
  6. GUAIFENESIN SYRUP [Concomitant]
  7. LANSOPRAZOLE [Concomitant]

REACTIONS (2)
  - DRUG ADMINISTRATION ERROR [None]
  - PHARMACEUTICAL PRODUCT COMPLAINT [None]
